FAERS Safety Report 9394997 (Version 1)
Quarter: 2013Q3

REPORT INFORMATION
  Report Type: Spontaneous
  Country: IT (occurrence: IT)
  Receive Date: 20130711
  Receipt Date: 20130711
  Transmission Date: 20140515
  Serious: Yes (Hospitalization)
  Sender: FDA-Public Use
  Company Number: IT-PFIZER INC-2013200939

PATIENT
  Age: 45 Year
  Sex: Female

DRUGS (4)
  1. METHYLPREDNISOLONE [Suspect]
     Indication: NEPHROTIC SYNDROME
     Dosage: 1 G, 1X/DAY
     Route: 042
     Dates: start: 20130625, end: 20130626
  2. INEGY [Concomitant]
  3. CALCIPARIN [Concomitant]
  4. FUROSEMIDE [Concomitant]

REACTIONS (3)
  - Rash erythematous [Unknown]
  - Rash papular [Unknown]
  - Visual impairment [Unknown]
